FAERS Safety Report 9195430 (Version 3)
Quarter: 2013Q2

REPORT INFORMATION
  Report Type: Spontaneous
  Country: CA (occurrence: CA)
  Receive Date: 20130328
  Receipt Date: 20130422
  Transmission Date: 20140414
  Serious: Yes (Other)
  Sender: FDA-Public Use
  Company Number: CA-AMGEN-CANSP2013020829

PATIENT
  Age: 50 Year
  Sex: Female

DRUGS (1)
  1. ENBREL [Suspect]
     Indication: RHEUMATOID ARTHRITIS
     Dosage: 50 MG, QWK
     Route: 058
     Dates: start: 20120615

REACTIONS (6)
  - Hypersensitivity [Unknown]
  - Swollen tongue [Unknown]
  - Tongue pruritus [Unknown]
  - Rash [Recovering/Resolving]
  - Lip swelling [Unknown]
  - Tinea infection [Unknown]
